FAERS Safety Report 19045815 (Version 1)
Quarter: 2021Q1

REPORT INFORMATION
  Report Type: Spontaneous
  Country: CN (occurrence: CN)
  Receive Date: 20210322
  Receipt Date: 20210322
  Transmission Date: 20210420
  Serious: Yes (Hospitalization)
  Sender: FDA-Public Use
  Company Number: CN-PFIZER INC-2021277544

PATIENT
  Sex: Male

DRUGS (2)
  1. XELJANZ [Suspect]
     Active Substance: TOFACITINIB CITRATE
     Indication: SUICIDE ATTEMPT
     Dosage: 95 MG, SINGLE
     Route: 048
  2. METHOTREXATE SODIUM. [Suspect]
     Active Substance: METHOTREXATE SODIUM
     Indication: SUICIDE ATTEMPT
     Dosage: 200 MG
     Route: 048

REACTIONS (2)
  - Blood test abnormal [Unknown]
  - Intentional overdose [Unknown]
